FAERS Safety Report 14632796 (Version 3)
Quarter: 2018Q2

REPORT INFORMATION
  Report Type: Spontaneous
  Country: RO (occurrence: RO)
  Receive Date: 20180313
  Receipt Date: 20180629
  Transmission Date: 20180711
  Serious: Yes (Death, Hospitalization, Other)
  Sender: FDA-Public Use
  Company Number: PHHY2018RO035709

PATIENT
  Age: 18 Year
  Sex: Female

DRUGS (15)
  1. MYFORTIC [Suspect]
     Active Substance: MYCOPHENOLATE SODIUM
     Indication: RENAL TRANSPLANT
     Dosage: 1 DF, BID(540 MG IN MORNING, 360 MG IN NIGHT),TWICE DAILY
     Route: 048
     Dates: start: 201103, end: 201203
  2. MYCOPHENOLATE MOFETIL. [Suspect]
     Active Substance: MYCOPHENOLATE MOFETIL
     Indication: PROPHYLAXIS AGAINST TRANSPLANT REJECTION
     Dosage: 1000 MG, QD
     Route: 048
     Dates: start: 200808, end: 200812
  3. SIROLIMUS. [Suspect]
     Active Substance: SIROLIMUS
     Indication: RENAL TRANSPLANT
     Dosage: UNK
     Route: 065
  4. SIROLIMUS. [Suspect]
     Active Substance: SIROLIMUS
     Indication: PROPHYLAXIS AGAINST TRANSPLANT REJECTION
  5. MYCOPHENOLATE MOFETIL. [Suspect]
     Active Substance: MYCOPHENOLATE MOFETIL
     Dosage: 1000 MG, QD
     Route: 048
     Dates: start: 200902, end: 201009
  6. THYMOGLOBULIN [Suspect]
     Active Substance: LAPINE T-LYMPHOCYTE IMMUNE GLOBULIN
     Indication: RENAL TRANSPLANT
     Dosage: UNK
     Route: 042
  7. TACROLIMUS. [Suspect]
     Active Substance: TACROLIMUS
     Dosage: 5 MG, QD
     Route: 048
     Dates: start: 200903, end: 201009
  8. MYCOPHENOLATE MOFETIL. [Suspect]
     Active Substance: MYCOPHENOLATE MOFETIL
     Indication: RENAL TRANSPLANT
     Dosage: 2 DF, (750 MG IN MORNING, 500 MG IN NIGHT),TWICE DAILY
     Route: 048
  9. METHYLPREDNISOLONE. [Suspect]
     Active Substance: METHYLPREDNISOLONE
     Indication: RENAL TRANSPLANT
     Dosage: 8 MG, QD
     Route: 048
     Dates: start: 200812, end: 200903
  10. METHYLPREDNISOLONE. [Suspect]
     Active Substance: METHYLPREDNISOLONE
     Indication: PROPHYLAXIS AGAINST TRANSPLANT REJECTION
     Dosage: 16 MG, QD
     Route: 048
     Dates: start: 200802, end: 200812
  11. TACROLIMUS. [Suspect]
     Active Substance: TACROLIMUS
     Indication: RENAL TRANSPLANT
     Dosage: 6 MG, QD
     Route: 048
  12. TACROLIMUS. [Suspect]
     Active Substance: TACROLIMUS
     Dosage: 1 DF, BID(2 MG IN MORNING, 1.5 MG IN NIGHT),TWICE DAILY
     Route: 048
     Dates: start: 201009, end: 201301
  13. TACROLIMUS. [Suspect]
     Active Substance: TACROLIMUS
     Indication: PROPHYLAXIS AGAINST TRANSPLANT REJECTION
     Dosage: 3 MG, QD
     Route: 048
     Dates: start: 201301, end: 201502
  14. THYMOGLOBULIN [Suspect]
     Active Substance: LAPINE T-LYMPHOCYTE IMMUNE GLOBULIN
     Indication: PROPHYLAXIS AGAINST TRANSPLANT REJECTION
     Dosage: UNK, ONCE DAILY
     Route: 042
     Dates: start: 200812
  15. TACROLIMUS. [Suspect]
     Active Substance: TACROLIMUS
     Dosage: 3 MG, QD
     Route: 048
     Dates: start: 200812, end: 200902

REACTIONS (21)
  - Hodgkin^s disease lymphocyte depletion type stage unspecified [Fatal]
  - Lymphadenopathy [Fatal]
  - Stomatitis [Fatal]
  - Anaemia [Fatal]
  - Pericarditis [Fatal]
  - Urinary tract infection [Recovered/Resolved]
  - Dysphagia [Fatal]
  - Salivary gland mass [Fatal]
  - Ascites [Fatal]
  - Thymus enlargement [Fatal]
  - Epstein-Barr virus infection [Fatal]
  - Decreased appetite [Fatal]
  - Post transplant lymphoproliferative disorder [Fatal]
  - Pyrexia [Fatal]
  - Dizziness [Fatal]
  - Lymphopenia [Fatal]
  - Jaundice [Fatal]
  - Asthenia [Fatal]
  - Leukopenia [Fatal]
  - Abdominal pain lower [Fatal]
  - Pleurisy [Fatal]

NARRATIVE: CASE EVENT DATE: 200810
